FAERS Safety Report 5312807-7 (Version None)
Quarter: 2007Q2

REPORT INFORMATION
  Report Type: 
  Country: None (occurrence: None)
  Receive Date: 20070430
  Receipt Date: 20070424
  Transmission Date: 20071010
  Serious: Yes (Hospitalization)
  Sender: FDA-Public Use
  Company Number: US-SHR-US-2007-010561

PATIENT
  Age: 66 Year
  Sex: Female
  Weight: 54 kg

DRUGS (7)
  1. ULTRAVIST (PHARMACY BULK) [Suspect]
     Dosage: 81 ML, 1 DOSE
     Route: 042
     Dates: start: 20070323, end: 20070323
  2. READI-CAT [Concomitant]
     Dosage: UNK, 1 DOSE
     Route: 048
     Dates: start: 20070323, end: 20070323
  3. LISINOPRIL [Concomitant]
     Indication: HYPERTENSION
  4. LIPITOR [Concomitant]
  5. ASPIRIN [Concomitant]
  6. VITAMIN CAP [Concomitant]
  7. CALCIUM CHLORIDE [Concomitant]

REACTIONS (13)
  - ANAPHYLACTIC SHOCK [None]
  - DIZZINESS [None]
  - ELECTROCARDIOGRAM QT PROLONGED [None]
  - FLUSHING [None]
  - HEADACHE [None]
  - HEART RATE INCREASED [None]
  - HYPOTENSION [None]
  - LIP SWELLING [None]
  - RASH ERYTHEMATOUS [None]
  - RESPIRATORY DISTRESS [None]
  - ROSACEA [None]
  - SYNCOPE [None]
  - URTICARIA LOCALISED [None]
